FAERS Safety Report 6193142-4 (Version None)
Quarter: 2009Q2

REPORT INFORMATION
  Report Type: 
  Country: None (occurrence: None)
  Receive Date: 20090514
  Receipt Date: 20090514
  Transmission Date: 20091009
  Serious: Yes (Hospitalization, Other)
  Sender: FDA-Public Use
  Company Number: None

PATIENT
  Sex: Male
  Weight: 100.9253 kg

DRUGS (3)
  1. IRINOTECAN HCL [Suspect]
     Indication: PANCREATIC CARCINOMA METASTATIC
     Dosage: 200 MG IV DRIP
     Route: 041
     Dates: start: 20090311, end: 20090428
  2. OXALIPLATIN [Suspect]
     Indication: PANCREATIC CARCINOMA METASTATIC
     Dosage: 140 MG IV DRIP
     Route: 041
     Dates: start: 20090311, end: 20090428
  3. CETUXIMAB [Suspect]
     Indication: PANCREATIC CARCINOMA METASTATIC
     Dosage: 570 MG IV DRIP
     Route: 041
     Dates: start: 20090311, end: 20090428

REACTIONS (5)
  - CHOLANGITIS [None]
  - COMPLICATION OF DEVICE INSERTION [None]
  - DUODENAL OBSTRUCTION [None]
  - PULMONARY EMBOLISM [None]
  - PYREXIA [None]
